FAERS Safety Report 9743126 (Version 1)
Quarter: 2013Q4

REPORT INFORMATION
  Report Type: Spontaneous
  Country: US (occurrence: US)
  Receive Date: 20131210
  Receipt Date: 20131210
  Transmission Date: 20140711
  Serious: No
  Sender: FDA-Public Use
  Company Number: US-TEVA-379305USA

PATIENT
  Age: 23 Year
  Sex: Female
  Weight: 72.64 kg

DRUGS (1)
  1. PARAGARD 380A [Suspect]
     Indication: CONTRACEPTION
     Route: 015

REACTIONS (12)
  - Weight increased [Not Recovered/Not Resolved]
  - Contusion [Unknown]
  - Alopecia [Not Recovered/Not Resolved]
  - Anger [Unknown]
  - Mood swings [Unknown]
  - Seasonal allergy [Unknown]
  - Amnesia [Unknown]
  - Menorrhagia [Not Recovered/Not Resolved]
  - Muscle spasms [Recovered/Resolved]
  - Menorrhagia [Fatal]
  - Device expulsion [Recovered/Resolved]
  - Back pain [Unknown]
